FAERS Safety Report 23168350 (Version 1)
Quarter: 2023Q4

REPORT INFORMATION
  Report Type: Spontaneous
  Country: NL (occurrence: NL)
  Receive Date: 20231110
  Receipt Date: 20231110
  Transmission Date: 20240110
  Serious: Yes (Other)
  Sender: FDA-Public Use
  Company Number: None

PATIENT
  Age: 26 Year
  Sex: Male
  Weight: 70 kg

DRUGS (1)
  1. OXYBUTYNIN CHLORIDE [Suspect]
     Active Substance: OXYBUTYNIN CHLORIDE
     Indication: Hypertonic bladder
     Dosage: 10 MILLIGRAM DAILY; 1 PIECE 2 TIMES A DAY   , BRAND NAME NOT SPECIFIED
     Route: 065
     Dates: start: 20151013, end: 20231002

REACTIONS (1)
  - Confusional state [Recovering/Resolving]
